FAERS Safety Report 7653122-6 (Version None)
Quarter: 2011Q3

REPORT INFORMATION
  Report Type: 
  Country: None (occurrence: None)
  Receive Date: 20110803
  Receipt Date: 20110729
  Transmission Date: 20111222
  Serious: Yes (Other)
  Sender: FDA-Public Use
  Company Number: IE-PFIZER INC-2011174287

PATIENT
  Age: 42 Year
  Sex: Female

DRUGS (4)
  1. DIAZEPAM [Concomitant]
     Dosage: 6 MG, 1X/DAY
     Dates: start: 20110628
  2. VENTOLIN HFA [Concomitant]
     Dosage: 2 PUFFS, AS NEEDED ONCE DAILY - UP TO 6 ONCE DAILY
  3. LYRICA [Suspect]
     Indication: MUSCLE SPASMS
     Dosage: 25 MG, 2X/DAY
     Route: 048
     Dates: start: 20110628, end: 20110708
  4. SPIRIVA [Concomitant]
     Dosage: UNK; 2X/DAY

REACTIONS (6)
  - INSOMNIA [None]
  - DIZZINESS [None]
  - SOMNOLENCE [None]
  - VOMITING [None]
  - WEIGHT DECREASED [None]
  - NAUSEA [None]
